FAERS Safety Report 17517184 (Version 1)
Quarter: 2020Q1

REPORT INFORMATION
  Report Type: Spontaneous
  Country: US (occurrence: US)
  Receive Date: 20200307
  Receipt Date: 20200307
  Transmission Date: 20200409
  Serious: No
  Sender: FDA-Public Use
  Company Number: None

PATIENT
  Age: 57 Year
  Sex: Female
  Weight: 87.75 kg

DRUGS (10)
  1. MONTELUKAST 10MG TABLET GENERIC FOR SINGULAIR [Suspect]
     Active Substance: MONTELUKAST SODIUM
     Indication: ASTHMA
     Dosage: ?          QUANTITY:90 TABLET(S);?
     Route: 048
     Dates: start: 20200219
  2. LOSARTAN 100 MG [Concomitant]
     Active Substance: LOSARTAN
  3. ZINC COMBO [Concomitant]
  4. ATENOLOL 25 MG [Concomitant]
     Active Substance: ATENOLOL
  5. FAMOTIDINE. [Concomitant]
     Active Substance: FAMOTIDINE
  6. CALCIUM [Concomitant]
     Active Substance: CALCIUM
  7. COQ10 [Concomitant]
     Active Substance: UBIDECARENONE
  8. LORATADINE 10 MG [Concomitant]
     Active Substance: LORATADINE
  9. HYDROCHLOROTHIZIDE 25 MG [Concomitant]
  10. MAGNESIUM [Concomitant]
     Active Substance: MAGNESIUM

REACTIONS (3)
  - Drug ineffective [None]
  - Asthma [None]
  - Product substitution issue [None]

NARRATIVE: CASE EVENT DATE: 20200219
